FAERS Safety Report 25691420 (Version 2)
Quarter: 2025Q3

REPORT INFORMATION
  Report Type: Spontaneous
  Country: US (occurrence: US)
  Receive Date: 20250818
  Receipt Date: 20250918
  Transmission Date: 20251021
  Serious: No
  Sender: BRISTOL-MYERS SQUIBB COMPANY
  Company Number: US-BRISTOL-MYERS SQUIBB COMPANY-2025-114202

PATIENT
  Age: 65 Year
  Sex: Female

DRUGS (2)
  1. KRAZATI [Suspect]
     Active Substance: ADAGRASIB
     Indication: Product used for unknown indication
  2. KRAZATI [Suspect]
     Active Substance: ADAGRASIB

REACTIONS (2)
  - Herpes zoster [Unknown]
  - Off label use [Unknown]
